FAERS Safety Report 19032833 (Version 1)
Quarter: 2021Q1

REPORT INFORMATION
  Report Type: Spontaneous
  Country: GR (occurrence: GR)
  Receive Date: 20210319
  Receipt Date: 20210319
  Transmission Date: 20210420
  Serious: Yes (Death, Life-Threatening, Hospitalization, Other)
  Sender: FDA-Public Use
  Company Number: GR-ASTRAZENECA-2021A153937

PATIENT
  Age: 62 Year
  Sex: Female

DRUGS (3)
  1. XIGDUO XR [Suspect]
     Active Substance: DAPAGLIFLOZIN PROPANEDIOL\METFORMIN HYDROCHLORIDE
     Indication: TYPE 2 DIABETES MELLITUS
     Route: 048
  2. INSULIN [Concomitant]
     Active Substance: INSULIN NOS
     Route: 065
  3. GLP 1 VICTOZA [Concomitant]
     Route: 065

REACTIONS (3)
  - Toxicity to various agents [Fatal]
  - Euglycaemic diabetic ketoacidosis [Recovered/Resolved with Sequelae]
  - Intestinal sepsis [Fatal]

NARRATIVE: CASE EVENT DATE: 202102
